FAERS Safety Report 6233098-9 (Version None)
Quarter: 2009Q2

REPORT INFORMATION
  Report Type: 
  Country: None (occurrence: None)
  Receive Date: 20090616
  Receipt Date: 20090616
  Transmission Date: 20091009
  Serious: Yes (Life-Threatening, Hospitalization)
  Sender: FDA-Public Use
  Company Number: None

PATIENT
  Age: 63 Year
  Sex: Female
  Weight: 53.6 kg

DRUGS (7)
  1. FULVESTRANT 250MG [Suspect]
     Indication: BREAST CANCER METASTATIC
     Dosage: 250MG EVERY 4 WEEKS INTRAMUSCULAR
     Route: 030
     Dates: start: 20080723
  2. RAD001 10MG [Suspect]
     Indication: BREAST CANCER METASTATIC
     Dosage: 10MG QD ORAL
     Route: 048
     Dates: start: 20080723
  3. LISINOPRIL [Concomitant]
  4. ADVIL [Concomitant]
  5. PRAVACHOL [Concomitant]
  6. ZOMETA [Concomitant]
  7. ATIVAN [Concomitant]

REACTIONS (1)
  - RENAL FAILURE ACUTE [None]
